FAERS Safety Report 22283374 (Version 3)
Quarter: 2023Q2

REPORT INFORMATION
  Report Type: Report from Study
  Country: DE (occurrence: DE)
  Receive Date: 20230504
  Receipt Date: 20230610
  Transmission Date: 20230722
  Serious: Yes (Congenital Anomaly, Other)
  Sender: FDA-Public Use
  Company Number: DE-MYLANLABS-2023M1043863

PATIENT

DRUGS (10)
  1. UNSPECIFIED INGREDIENT [Suspect]
     Active Substance: UNSPECIFIED INGREDIENT
     Indication: Foetal exposure during pregnancy
     Dosage: UNK
     Route: 065
  2. METHOTREXATE [Suspect]
     Active Substance: METHOTREXATE
     Indication: Foetal exposure during pregnancy
     Dosage: MATERNAL DOSE: 10 MG (FROM 12 OCT 2011)
     Route: 064
     Dates: start: 20111012
  3. METHOTREXATE [Suspect]
     Active Substance: METHOTREXATE
     Dosage: MATERNAL DOSE: 10 MG (FROM 04 JAN 2012)
     Route: 064
  4. METHOTREXATE [Suspect]
     Active Substance: METHOTREXATE
     Dosage: MATERNAL DOSE: UNK
     Route: 064
     Dates: start: 20120328
  5. RITUXIMAB [Suspect]
     Active Substance: RITUXIMAB
     Indication: Foetal exposure during pregnancy
     Dosage: MATERNAL DOSE: 1000 MG (FROM JUL 2017)
     Route: 064
  6. RITUXIMAB [Suspect]
     Active Substance: RITUXIMAB
     Dosage: MATERNAL DOSE: 500 MG (FROM MAR 2018)
     Route: 064
  7. MABTHERA [Suspect]
     Active Substance: RITUXIMAB
     Indication: Foetal exposure during pregnancy
     Dosage: MATERNAL DOSE: 1000 MG (FROM OCT 2011)
     Route: 064
  8. MABTHERA [Suspect]
     Active Substance: RITUXIMAB
     Dosage: MATERNAL DOSE: 1000 MG (FROM JAN 2014)
     Route: 064
  9. MABTHERA [Suspect]
     Active Substance: RITUXIMAB
     Dosage: MATERNAL DOSE: 1000 MG (FROM AUG 2014)
     Route: 064
  10. MABTHERA [Suspect]
     Active Substance: RITUXIMAB
     Dosage: MATERNAL DOSE: 500 MG (FROM MAY 2015)
     Route: 064

REACTIONS (3)
  - Trisomy 21 [Unknown]
  - Cardiac disorder [Unknown]
  - Foetal exposure during pregnancy [Unknown]

NARRATIVE: CASE EVENT DATE: 20121012
